FAERS Safety Report 8841800 (Version 1)
Quarter: 2012Q4

REPORT INFORMATION
  Report Type: 
  Country: US (occurrence: US)
  Receive Date: 20121016
  Receipt Date: 20121016
  Transmission Date: 20130627
  Serious: Yes (Other)
  Sender: FDA-Public Use
  Company Number: US-JNJFOC-20121005089

PATIENT
  Age: 41 Year
  Sex: Female

DRUGS (1)
  1. REMICADE [Suspect]
     Indication: RHEUMATOID ARTHRITIS
     Dosage: 7 mg/kg
     Route: 042
     Dates: end: 20120827

REACTIONS (5)
  - Hypertension [Unknown]
  - Heart rate increased [Unknown]
  - Infusion related reaction [Unknown]
  - Blood glucose abnormal [Not Recovered/Not Resolved]
  - Chills [Unknown]
